FAERS Safety Report 18969046 (Version 1)
Quarter: 2021Q1

REPORT INFORMATION
  Report Type: Spontaneous
  Country: US (occurrence: US)
  Receive Date: 20210304
  Receipt Date: 20210304
  Transmission Date: 20210420
  Serious: Yes (Other)
  Sender: FDA-Public Use
  Company Number: US-PFIZER INC-2021192537

PATIENT
  Age: 23 Year
  Sex: Male
  Weight: 61.69 kg

DRUGS (5)
  1. PRECEDEX [Suspect]
     Active Substance: DEXMEDETOMIDINE HYDROCHLORIDE
     Indication: SEDATION
     Dosage: 20 UG, SINGLE
     Route: 042
     Dates: start: 20210219, end: 20210219
  2. FENTANYL. [Concomitant]
     Active Substance: FENTANYL
     Dosage: 100 MG, SINGLE
     Route: 042
  3. LIDOCAINE. [Concomitant]
     Active Substance: LIDOCAINE
     Dosage: 100 MG, SINGLE
  4. VERSED [Concomitant]
     Active Substance: MIDAZOLAM HYDROCHLORIDE
     Dosage: 2 MG
  5. BUPIVACAINE. [Concomitant]
     Active Substance: BUPIVACAINE
     Dosage: UNK

REACTIONS (2)
  - Seizure [Recovered/Resolved]
  - Speech disorder [Recovered/Resolved]

NARRATIVE: CASE EVENT DATE: 20210219
